FAERS Safety Report 6553700-1 (Version None)
Quarter: 2010Q1

REPORT INFORMATION
  Report Type: 
  Country: None (occurrence: None)
  Receive Date: 20100127
  Receipt Date: 20100118
  Transmission Date: 20100710
  Serious: Yes (Hospitalization, Other)
  Sender: FDA-Public Use
  Company Number: CH-WYE-G05363610

PATIENT
  Age: 55 Year
  Sex: Female
  Weight: 70 kg

DRUGS (8)
  1. EFFEXOR XR [Suspect]
     Indication: DEPRESSION
     Dosage: 300 MG DAILY, THEN IN JAN-2010 DOSE REDUCED TO 150 MG DAILY
  2. ELTROXIN [Concomitant]
     Dosage: DOSE AND FREQUENCY UNKNOWN
  3. VITAMINS [Concomitant]
     Dosage: DOSE AND FREQUENCY UNKNOWN
  4. ZURCAL [Concomitant]
     Dosage: 20 MG, FREQUENCY UNKNOWN
  5. SEROQUEL [Concomitant]
     Dosage: DOSE AND FREQUENCY AS NEEDED
  6. CALCIUM [Concomitant]
     Dosage: DOSE AND FREQUENCY UNKNOWN
  7. LITHIUM [Concomitant]
     Indication: PERSONALITY DISORDER
     Dosage: DOSE AND FREQUENCY UNKNOWN
  8. TRIMIPRAMINE [Concomitant]
     Dosage: 25 MG, FREQUENCY UNKNOWN

REACTIONS (3)
  - AGITATION [None]
  - ANTIDEPRESSANT DRUG LEVEL ABOVE THERAPEUTIC [None]
  - WEIGHT DECREASED [None]
